FAERS Safety Report 6262873-X (Version None)
Quarter: 2009Q3

REPORT INFORMATION
  Report Type: 
  Country: None (occurrence: None)
  Receive Date: 20090709
  Receipt Date: 20090629
  Transmission Date: 20100115
  Serious: Yes (Death)
  Sender: FDA-Public Use
  Company Number: EC-BAXTER-2009BH010625

PATIENT
  Age: 8 Year
  Sex: Female
  Weight: 43 kg

DRUGS (4)
  1. LACTATED RINGER'S [Suspect]
     Indication: DEHYDRATION
     Route: 042
     Dates: start: 20090616
  2. 5% DEXTROSE INJECTION [Concomitant]
     Indication: DEHYDRATION
     Route: 042
     Dates: start: 20090615
  3. AMPICILLIN [Concomitant]
     Indication: DENGUE FEVER
     Route: 042
     Dates: start: 20090615
  4. IBUPROFEN [Concomitant]
     Indication: PYREXIA
     Route: 048
     Dates: start: 20090615

REACTIONS (3)
  - DEATH [None]
  - RASH [None]
  - VOMITING [None]
